FAERS Safety Report 8189505-8 (Version None)
Quarter: 2012Q1

REPORT INFORMATION
  Report Type: 
  Country: None (occurrence: None)
  Receive Date: 20120307
  Receipt Date: 20120302
  Transmission Date: 20120608
  Serious: No
  Sender: FDA-Public Use
  Company Number: US-PFIZER INC-2012056906

PATIENT
  Sex: Male
  Weight: 102 kg

DRUGS (3)
  1. OXYCODONE [Concomitant]
     Dosage: 10 MG, AS NEEDED
  2. MORPHINE [Concomitant]
     Dosage: 300 MG, 1X/DAY
  3. LYRICA [Suspect]
     Indication: NEUROPATHY PERIPHERAL
     Dosage: 300 MG, 2X/DAY
     Route: 048
     Dates: start: 20080101, end: 20120224

REACTIONS (1)
  - PAIN [None]
